FAERS Safety Report 4438613-3 (Version None)
Quarter: 2004Q3

REPORT INFORMATION
  Report Type: 
  Country: None (occurrence: None)
  Receive Date: 20040728
  Receipt Date: 20040414
  Transmission Date: 20050211
  Serious: No
  Sender: FDA-Public Use
  Company Number: USA040260296

PATIENT
  Age: 48 Year
  Sex: Male
  Weight: 130 kg

DRUGS (6)
  1. STRATTERA [Suspect]
     Indication: ATTENTION DEFICIT/HYPERACTIVITY DISORDER
     Dosage: 80 MG/1 DAY
     Dates: start: 20040105
  2. LEXAPRO [Concomitant]
  3. WELLBUTRIN SR [Concomitant]
  4. KLONOPIN [Concomitant]
  5. HYZAAR [Concomitant]
  6. TESTOSTERONE [Concomitant]

REACTIONS (2)
  - LIBIDO INCREASED [None]
  - ORGASM ABNORMAL [None]
